FAERS Safety Report 13060378 (Version 1)
Quarter: 2016Q4

REPORT INFORMATION
  Report Type: Spontaneous
  Country: US (occurrence: US)
  Receive Date: 20161224
  Receipt Date: 20161224
  Transmission Date: 20170207
  Serious: Yes (Other)
  Sender: FDA-Public Use
  Company Number: US-AMGEN-USASP2016180800

PATIENT
  Age: 87 Year
  Sex: Female

DRUGS (4)
  1. IMLYGIC [Suspect]
     Active Substance: TALIMOGENE LAHERPAREPVEC
     Dosage: UNK UNK, UNK (10 TO THE 8TH DOSE)
     Route: 065
     Dates: start: 20161104, end: 20161104
  2. IMLYGIC [Suspect]
     Active Substance: TALIMOGENE LAHERPAREPVEC
     Indication: MELANOMA RECURRENT
     Dosage: UNK UNK, UNK (10 TO THE 6TH DOSE)
     Route: 065
     Dates: start: 20161014, end: 20161014
  3. IMLYGIC [Suspect]
     Active Substance: TALIMOGENE LAHERPAREPVEC
     Dosage: UNK UNK, Q2WK (EVERY 2 WEEKS)
     Route: 065
     Dates: start: 20161118, end: 20161118
  4. IMLYGIC [Suspect]
     Active Substance: TALIMOGENE LAHERPAREPVEC
     Dosage: UNK UNK, Q2WK (EVERY 2 WEEKS)
     Route: 065
     Dates: start: 20161202, end: 20161202

REACTIONS (1)
  - Malignant melanoma [Unknown]

NARRATIVE: CASE EVENT DATE: 201611
